FAERS Safety Report 5496683-8 (Version None)
Quarter: 2007Q4

REPORT INFORMATION
  Report Type: 
  Country: None (occurrence: None)
  Receive Date: 20071025
  Receipt Date: 20070720
  Transmission Date: 20080405
  Serious: No
  Sender: FDA-Public Use
  Company Number: A0661318A

PATIENT
  Age: 45 Year
  Sex: Male
  Weight: 76.4 kg

DRUGS (5)
  1. ADVAIR DISKUS 100/50 [Suspect]
     Indication: ASTHMA
     Dosage: 1PUFF TWICE PER DAY
     Route: 055
     Dates: start: 20050501, end: 20070601
  2. SOMA [Concomitant]
  3. NEXIUM [Concomitant]
  4. METHADONE HCL [Concomitant]
  5. VICODIN [Concomitant]

REACTIONS (1)
  - SWOLLEN TONGUE [None]
